FAERS Safety Report 16295987 (Version 2)
Quarter: 2019Q2

REPORT INFORMATION
  Report Type: Spontaneous
  Country: US (occurrence: US)
  Receive Date: 20190510
  Receipt Date: 20190515
  Transmission Date: 20190711
  Serious: Yes (Hospitalization)
  Sender: FDA-Public Use
  Company Number: US-STRIDES ARCOLAB LIMITED-2019SP003942

PATIENT
  Age: 18 Year
  Sex: Female

DRUGS (1)
  1. CETIRIZINE [Suspect]
     Active Substance: CETIRIZINE HYDROCHLORIDE
     Indication: ABDOMINAL PAIN
     Dosage: 10 MG, UNK,10 TO16 TABLETS
     Route: 048

REACTIONS (9)
  - Blood bicarbonate decreased [Unknown]
  - Cyanosis central [Unknown]
  - Methaemoglobinaemia [Unknown]
  - Intentional overdose [Unknown]
  - Off label use [Unknown]
  - Blood bilirubin increased [Unknown]
  - Blood creatinine increased [Unknown]
  - Tremor [Unknown]
  - Anxiety [Unknown]
